FAERS Safety Report 9493383 (Version 1)
Quarter: 2013Q3

REPORT INFORMATION
  Report Type: Spontaneous
  Country: US (occurrence: US)
  Receive Date: 20130902
  Receipt Date: 20130902
  Transmission Date: 20140515
  Serious: Yes (Other)
  Sender: FDA-Public Use
  Company Number: US-PFIZER INC-2013251705

PATIENT
  Sex: Female

DRUGS (2)
  1. IBUPROFEN [Suspect]
     Indication: MIGRAINE
     Route: 065
  2. IBUPROFEN [Suspect]
     Indication: PAIN
     Route: 065

REACTIONS (3)
  - Overdose [Unknown]
  - Gastric perforation [Unknown]
  - Drug ineffective [Recovering/Resolving]
